FAERS Safety Report 25276253 (Version 1)
Quarter: 2025Q2

REPORT INFORMATION
  Report Type: Report from Study
  Country: KR (occurrence: KR)
  Receive Date: 20250507
  Receipt Date: 20250507
  Transmission Date: 20250716
  Serious: Yes (Other)
  Sender: Haleon PLC
  Company Number: KR-HALEON-2240602

PATIENT
  Age: 34 Year
  Sex: Female

DRUGS (1)
  1. DICLOFENAC [Suspect]
     Active Substance: DICLOFENAC
     Indication: Product used for unknown indication

REACTIONS (11)
  - Anaphylactic reaction [Unknown]
  - Flushing [Unknown]
  - Chest discomfort [Unknown]
  - Palpitations [Unknown]
  - Chest pain [Unknown]
  - Hypersensitivity [Unknown]
  - Vomiting [Unknown]
  - Hypotension [Unknown]
  - Nausea [Unknown]
  - Abdominal pain [Unknown]
  - Loss of consciousness [Unknown]
